FAERS Safety Report 18678424 (Version 1)
Quarter: 2020Q4

REPORT INFORMATION
  Report Type: Spontaneous
  Country: SE (occurrence: SE)
  Receive Date: 20201229
  Receipt Date: 20201229
  Transmission Date: 20210114
  Serious: Yes (Life-Threatening, Other)
  Sender: FDA-Public Use
  Company Number: SE-BRISTOL-MYERS SQUIBB COMPANY-BMS-2020-110330

PATIENT
  Age: 92 Year
  Sex: Female

DRUGS (5)
  1. ELIQUIS [Suspect]
     Active Substance: APIXABAN
     Indication: CEREBROVASCULAR ACCIDENT PROPHYLAXIS
     Dosage: 5 MILLIGRAM PER DAY
     Route: 048
     Dates: start: 20200908, end: 20201125
  2. LACTULOSE. [Concomitant]
     Active Substance: LACTULOSE
     Indication: PRODUCT USED FOR UNKNOWN INDICATION
     Dosage: 15 ML VID BEHOV
     Route: 065
     Dates: start: 20200917
  3. OVESTERIN [Concomitant]
     Active Substance: ESTRIOL
     Indication: PRODUCT USED FOR UNKNOWN INDICATION
     Dosage: 1 MILLIGRAM PER WEEK
     Route: 067
     Dates: start: 20200917
  4. ZOPIKLON PILUM [Concomitant]
     Indication: PRODUCT USED FOR UNKNOWN INDICATION
     Dosage: 0,5 -1 TABLETTER VID BEHOV, MAX 1 TABLETT PER DYGN
     Route: 065
     Dates: start: 20200909
  5. ALVEDON [Concomitant]
     Active Substance: ACETAMINOPHEN
     Indication: PRODUCT USED FOR UNKNOWN INDICATION
     Dosage: 3000 MILLIGRAM, QD
     Route: 065
     Dates: start: 20200917

REACTIONS (6)
  - Melaena [Not Recovered/Not Resolved]
  - Fall [Not Recovered/Not Resolved]
  - Haematemesis [Not Recovered/Not Resolved]
  - Product use issue [Not Recovered/Not Resolved]
  - Epistaxis [Not Recovered/Not Resolved]
  - Haematuria [Not Recovered/Not Resolved]

NARRATIVE: CASE EVENT DATE: 20200919
